FAERS Safety Report 25768942 (Version 2)
Quarter: 2025Q3

REPORT INFORMATION
  Report Type: Spontaneous
  Country: US (occurrence: US)
  Receive Date: 20250905
  Receipt Date: 20250909
  Transmission Date: 20251020
  Serious: Yes (Other)
  Sender: NOVO NORDISK
  Company Number: US-NOVOPROD-1507954

PATIENT
  Sex: Female

DRUGS (3)
  1. OZEMPIC [Suspect]
     Active Substance: SEMAGLUTIDE
     Indication: Obesity
     Dates: start: 202501
  2. OZEMPIC [Suspect]
     Active Substance: SEMAGLUTIDE
     Indication: Diabetes mellitus
  3. OZEMPIC [Suspect]
     Active Substance: SEMAGLUTIDE
     Indication: Renal disorder
     Dates: start: 20250809

REACTIONS (4)
  - Rheumatoid arthritis [Unknown]
  - Blood glucose decreased [Unknown]
  - Decreased appetite [Unknown]
  - Product ineffective [Unknown]

NARRATIVE: CASE EVENT DATE: 20250101
